FAERS Safety Report 25633265 (Version 2)
Quarter: 2025Q3

REPORT INFORMATION
  Report Type: Report from Study
  Country: EU (occurrence: EU)
  Receive Date: 20250801
  Receipt Date: 20250818
  Transmission Date: 20251020
  Serious: No
  Sender: NOVARTIS
  Company Number: EU-002147023-NVSC2025DE097571

PATIENT
  Sex: Female
  Weight: 51 kg

DRUGS (2)
  1. KISQALI [Suspect]
     Active Substance: RIBOCICLIB SUCCINATE
     Indication: Hormone receptor positive HER2 negative breast cancer
     Dosage: 400 MG, QD (21D/7D) (TOTAL DAILY DOSE)
     Route: 048
     Dates: start: 20250528
  2. LETROZOLE [Suspect]
     Active Substance: LETROZOLE
     Indication: Hormone receptor positive HER2 negative breast cancer
     Dosage: 2.5 MG, QD (TOTAL DAILY DOSE)
     Route: 048
     Dates: start: 20250528

REACTIONS (2)
  - Anaemia [Not Recovered/Not Resolved]
  - Fatigue [Not Recovered/Not Resolved]

NARRATIVE: CASE EVENT DATE: 20250601
